FAERS Safety Report 8762286 (Version 1)
Quarter: 2012Q4

REPORT INFORMATION
  Report Type: 
  Country: FR (occurrence: FR)
  Receive Date: 20120829
  Receipt Date: 20120829
  Transmission Date: 20130627
  Serious: Yes (Life-Threatening, Hospitalization)
  Sender: FDA-Public Use
  Company Number: FR-PFIZER INC-2012208429

PATIENT
  Age: 49 Year
  Sex: Male

DRUGS (2)
  1. CELEBREX [Suspect]
     Indication: BACK PAIN
     Dosage: 200 mg, 1x/day,in the evening
     Route: 048
     Dates: start: 20120601, end: 20120731
  2. SERETIDE DISKUS [Concomitant]
     Dosage: 1 puff in the evening

REACTIONS (3)
  - Ischaemic stroke [Recovering/Resolving]
  - Myocardial ischaemia [Recovering/Resolving]
  - Hemiplegia [Recovering/Resolving]
